FAERS Safety Report 5302042-0 (Version None)
Quarter: 2007Q2

REPORT INFORMATION
  Report Type: 
  Country: None (occurrence: None)
  Receive Date: 20070416
  Receipt Date: 20070416
  Transmission Date: 20071010
  Serious: Yes (Other)
  Sender: FDA-Public Use
  Company Number: None

PATIENT
  Sex: Female
  Weight: 64.4108 kg

DRUGS (2)
  1. CIPRO [Suspect]
     Indication: CYSTITIS
     Dosage: 500MG 1 X PER DAY PO
     Route: 048
     Dates: start: 20070404, end: 20070406
  2. CIPRO [Suspect]
     Indication: URINARY TRACT INFECTION
     Dosage: 500MG 1 X PER DAY PO
     Route: 048
     Dates: start: 20070404, end: 20070406

REACTIONS (4)
  - DYSPNOEA [None]
  - FATIGUE [None]
  - HEADACHE [None]
  - RASH [None]
